FAERS Safety Report 8143502-7 (Version None)
Quarter: 2012Q1

REPORT INFORMATION
  Report Type: 
  Country: None (occurrence: None)
  Receive Date: 20120217
  Receipt Date: 20120208
  Transmission Date: 20120608
  Serious: Yes (Hospitalization)
  Sender: FDA-Public Use
  Company Number: BE-BRISTOL-MYERS SQUIBB COMPANY-16281552

PATIENT
  Age: 57 Year
  Sex: Male

DRUGS (1)
  1. SPRYCEL [Suspect]
     Indication: CHRONIC MYELOID LEUKAEMIA
     Dosage: SEP07-DEC08;140MG,JAN09-JAN11;100 UNITS NOS,FEB11-JUL11,JUL11-TODAY
     Route: 048
     Dates: start: 20070901

REACTIONS (2)
  - CARDIOMYOPATHY [None]
  - ATRIOVENTRICULAR BLOCK [None]
